FAERS Safety Report 4378404-5 (Version None)
Quarter: 2004Q2

REPORT INFORMATION
  Report Type: 
  Country: None (occurrence: None)
  Receive Date: 20040609
  Receipt Date: 20040527
  Transmission Date: 20050107
  Serious: Yes (Death)
  Sender: FDA-Public Use
  Company Number: USA-2004-0013794

PATIENT
  Age: 53 Year
  Sex: Male
  Weight: 83.9 kg

DRUGS (4)
  1. OXYCODONE HCL [Suspect]
  2. ETHANOL (ETHANOL) [Suspect]
  3. ACETAMINOPHEN [Suspect]
  4. PROPOXYPHENE HCL [Suspect]

REACTIONS (13)
  - ACCIDENT [None]
  - ACCIDENTAL OVERDOSE [None]
  - BLOOD ETHANOL INCREASED [None]
  - BRAIN OEDEMA [None]
  - CEREBRAL CYST [None]
  - CONTUSION [None]
  - CORONARY ARTERY ATHEROSCLEROSIS [None]
  - DRUG TOXICITY [None]
  - HEPATIC CIRRHOSIS [None]
  - MULTIPLE DRUG OVERDOSE [None]
  - PULMONARY CONGESTION [None]
  - PULMONARY OEDEMA [None]
  - SPINAL OSTEOARTHRITIS [None]
